FAERS Safety Report 10450510 (Version 1)
Quarter: 2014Q3

REPORT INFORMATION
  Report Type: Spontaneous
  Country: US (occurrence: US)
  Receive Date: 20140912
  Receipt Date: 20140912
  Transmission Date: 20150326
  Serious: Yes (Death)
  Sender: FDA-Public Use
  Company Number: US-GLAXOSMITHKLINE-A1088899A

PATIENT
  Age: 66 Year

DRUGS (2)
  1. BORTEZOMIB [Suspect]
     Active Substance: BORTEZOMIB
     Indication: PLASMA CELL MYELOMA
     Dosage: 1MGML WEEKLY
     Route: 042
     Dates: start: 20110228, end: 20120108
  2. MELPHALAN [Suspect]
     Active Substance: MELPHALAN
     Indication: PLASMA CELL MYELOMA
     Dosage: 2MG CYCLIC
     Route: 048
     Dates: start: 20110228

REACTIONS (1)
  - Death [Fatal]

NARRATIVE: CASE EVENT DATE: 20120108
